FAERS Safety Report 7768494-1 (Version None)
Quarter: 2011Q3

REPORT INFORMATION
  Report Type: 
  Country: None (occurrence: None)
  Receive Date: 20110922
  Receipt Date: 20100913
  Transmission Date: 20111222
  Serious: No
  Sender: FDA-Public Use
  Company Number: US-ASTRAZENECA-2010SE43036

PATIENT
  Age: 638 Month
  Sex: Male
  Weight: 90.7 kg

DRUGS (5)
  1. SEROQUEL [Suspect]
     Indication: SPEECH REHABILITATION
     Route: 048
  2. SEROQUEL [Suspect]
     Route: 048
  3. ATIVAN [Concomitant]
     Route: 048
  4. NORTRIPTYLINE HCL [Concomitant]
     Route: 048
  5. KLONOPIN [Concomitant]
     Route: 048

REACTIONS (4)
  - ANGER [None]
  - PAIN IN EXTREMITY [None]
  - DRUG DOSE OMISSION [None]
  - INSOMNIA [None]
